FAERS Safety Report 8335631-X (Version None)
Quarter: 2012Q2

REPORT INFORMATION
  Report Type: 
  Country: None (occurrence: None)
  Receive Date: 20120504
  Receipt Date: 20120423
  Transmission Date: 20120825
  Serious: Yes (Hospitalization)
  Sender: FDA-Public Use
  Company Number: JP-BIOGENIDEC-2011BI040162

PATIENT
  Age: 33 Year
  Sex: Male

DRUGS (5)
  1. PROLMON [Concomitant]
     Dates: start: 20110926
  2. AVONEX [Suspect]
     Indication: MULTIPLE SCLEROSIS
     Route: 030
     Dates: start: 20110828, end: 20110918
  3. REBAMIPIDE [Concomitant]
     Dates: start: 20110828, end: 20110918
  4. IBUPROFEN [Concomitant]
     Indication: PROPHYLAXIS
     Route: 048
     Dates: start: 20110828, end: 20110911
  5. URSO 250 [Concomitant]
     Dates: start: 20110926

REACTIONS (3)
  - HEPATITIS FULMINANT [None]
  - ASPARTATE AMINOTRANSFERASE INCREASED [None]
  - ALANINE AMINOTRANSFERASE INCREASED [None]
